FAERS Safety Report 5800812-3 (Version None)
Quarter: 2008Q3

REPORT INFORMATION
  Report Type: 
  Country: None (occurrence: None)
  Receive Date: 20080703
  Receipt Date: 20080625
  Transmission Date: 20090109
  Serious: Yes (Other)
  Sender: FDA-Public Use
  Company Number: JP-MERCK-0801USA04460

PATIENT
  Age: 86 Year
  Sex: Male

DRUGS (5)
  1. TRUSOPT [Suspect]
     Indication: GLAUCOMA
     Route: 047
     Dates: start: 20051202, end: 20080116
  2. TRUSOPT [Suspect]
     Route: 047
     Dates: start: 20020513, end: 20050701
  3. HYALEIN [Suspect]
     Route: 047
     Dates: start: 20070203, end: 20080119
  4. AZULENE [Suspect]
     Route: 047
     Dates: start: 20071221, end: 20080119
  5. CHONDROITIN ZS [Suspect]
     Route: 047
     Dates: start: 20070130, end: 20080119

REACTIONS (1)
  - VISUAL ACUITY REDUCED [None]
